FAERS Safety Report 9727584 (Version 1)
Quarter: 2013Q4

REPORT INFORMATION
  Report Type: Spontaneous
  Country: NL (occurrence: NL)
  Receive Date: 20131203
  Receipt Date: 20131203
  Transmission Date: 20140711
  Serious: Yes (Life-Threatening, Hospitalization)
  Sender: FDA-Public Use
  Company Number: NL-PFIZER INC-2013344741

PATIENT
  Sex: Male

DRUGS (10)
  1. OMEPRAZOLE [Suspect]
     Dosage: 1 DD (DIVIDED DOSE) (20 MG)
     Route: 065
  2. GABAPENTIN [Interacting]
     Indication: DIABETIC FOOT
     Dosage: 3 DD (DIVIDED DOSES) (300 MG)
     Route: 065
  3. INSULIN HUMAN [Interacting]
     Indication: TYPE 1 DIABETES MELLITUS
     Dosage: UNK
     Route: 065
  4. INSULIN ISOPHANE [Interacting]
     Indication: TYPE 1 DIABETES MELLITUS
     Dosage: UNK
     Route: 065
  5. PREDNISOLONE [Concomitant]
     Dosage: 0.37 % EYE DROPS
     Route: 047
  6. GRAMICIDIN [Concomitant]
     Dosage: UNK
     Route: 065
  7. NEOMYCIN SULFATE [Concomitant]
     Dosage: UNK
     Route: 065
  8. POLYMYXIN B SULPHATE [Concomitant]
     Dosage: EYE DROPS
     Route: 047
  9. ALFUZOSIN [Concomitant]
     Dosage: UNK
     Route: 065
  10. INSULIN [Concomitant]
     Dosage: UNK
     Route: 065

REACTIONS (5)
  - Hypoglycaemia [Recovered/Resolved]
  - Tremor [Recovered/Resolved]
  - Loss of consciousness [Recovered/Resolved]
  - Coma [Recovered/Resolved]
  - Drug interaction [Recovered/Resolved]
